FAERS Safety Report 24357660 (Version 1)
Quarter: 2024Q3

REPORT INFORMATION
  Report Type: Spontaneous
  Country: NL (occurrence: NL)
  Receive Date: 20240924
  Receipt Date: 20240924
  Transmission Date: 20241017
  Serious: Yes (Disabling)
  Sender: MYLAN
  Company Number: None

PATIENT
  Age: 15 Year
  Sex: Male
  Weight: 80 kg

DRUGS (1)
  1. ISOTRETINOIN [Suspect]
     Active Substance: ISOTRETINOIN
     Indication: Acne
     Dosage: 30 MILLIGRAM, Q8H (3 TIMES DAILY 3 CAPSULE)
     Route: 065
     Dates: start: 20230516, end: 20231123

REACTIONS (2)
  - Epiphyseal injury [Not Recovered/Not Resolved]
  - Epiphyses premature fusion [Not Recovered/Not Resolved]
